FAERS Safety Report 14794627 (Version 1)
Quarter: 2018Q2

REPORT INFORMATION
  Report Type: Spontaneous
  Country: FR (occurrence: FR)
  Receive Date: 20180423
  Receipt Date: 20180423
  Transmission Date: 20180711
  Serious: Yes (Hospitalization)
  Sender: FDA-Public Use
  Company Number: FR-TEVA-2018-FR-884896

PATIENT
  Age: 66 Year
  Sex: Male

DRUGS (8)
  1. CARBOPLATINE [Suspect]
     Active Substance: CARBOPLATIN
     Route: 042
  2. SOLUPRED (PREDNISOLONE SODIUM METAZOATE) [Suspect]
     Active Substance: PREDNISOLONE SODIUM METAZOATE
     Route: 048
  3. INNOHEP [Concomitant]
     Active Substance: TINZAPARIN SODIUM
     Route: 058
  4. ALIMTA [Concomitant]
     Active Substance: PEMETREXED DISODIUM
     Route: 042
  5. METFORMINE [Concomitant]
     Active Substance: METFORMIN HYDROCHLORIDE
     Route: 048
  6. OXYCONTIN [Concomitant]
     Active Substance: OXYCODONE HYDROCHLORIDE
     Route: 048
  7. OXYNORMORO [Concomitant]
     Active Substance: OXYCODONE HYDROCHLORIDE
     Route: 048
  8. INSULINE [Concomitant]
     Active Substance: INSULIN NOS
     Route: 058

REACTIONS (2)
  - Infection [Recovered/Resolved]
  - Immunodeficiency [Recovered/Resolved]
